FAERS Safety Report 12167773 (Version 2)
Quarter: 2016Q2

REPORT INFORMATION
  Report Type: Spontaneous
  Country: IT (occurrence: IT)
  Receive Date: 20160310
  Receipt Date: 20160412
  Transmission Date: 20160815
  Serious: Yes (Death, Life-Threatening)
  Sender: FDA-Public Use
  Company Number: IT-009507513-1603ITA003888

PATIENT
  Age: 76 Year
  Sex: Female
  Weight: 54 kg

DRUGS (8)
  1. LEVOPRAID [Concomitant]
     Active Substance: SULPIRIDE
  2. SOVALDI [Suspect]
     Active Substance: SOFOSBUVIR
     Indication: CHRONIC HEPATITIS C
     Dosage: 400 MG, QD
     Route: 048
     Dates: start: 20151202, end: 20160202
  3. LANSOX [Concomitant]
     Active Substance: LANSOPRAZOLE
     Route: 048
  4. EUTIROX [Concomitant]
     Active Substance: LEVOTHYROXINE SODIUM
     Dosage: 1 UNK, UNK
     Route: 048
  5. RIBAVIRIN. [Suspect]
     Active Substance: RIBAVIRIN
     Indication: CHRONIC HEPATITIS C
     Dosage: 800 MG, QD
     Route: 048
     Dates: start: 20151202, end: 20160202
  6. CONGESCOR [Concomitant]
     Active Substance: BISOPROLOL
     Dosage: 1 DF, UNK
     Route: 048
  7. SINTROM [Concomitant]
     Active Substance: ACENOCOUMAROL
  8. AMARYL [Concomitant]
     Active Substance: GLIMEPIRIDE
     Dosage: 1 DF, UNK
     Route: 048

REACTIONS (1)
  - Ischaemic stroke [Fatal]

NARRATIVE: CASE EVENT DATE: 20160202
